FAERS Safety Report 8196279-3 (Version None)
Quarter: 2012Q1

REPORT INFORMATION
  Report Type: 
  Country: None (occurrence: None)
  Receive Date: 20120306
  Receipt Date: 20120221
  Transmission Date: 20120608
  Serious: Yes (Death, Other)
  Sender: FDA-Public Use
  Company Number: 2012SP010401

PATIENT
  Age: 60 Year
  Sex: Female
  Weight: 105 kg

DRUGS (5)
  1. PERPHENAZINE [Concomitant]
  2. NEBIVOLOL HCL [Concomitant]
  3. AMLODIPINE [Concomitant]
  4. SYCREST (ASENAPINE /05706901/ ) [Suspect]
     Indication: MANIA
     Dosage: 10 MG; BID; SL, 10 MG; TID; SL
     Route: 060
     Dates: start: 20120206, end: 20120213
  5. SYCREST (ASENAPINE /05706901/ ) [Suspect]
     Indication: MANIA
     Dosage: 10 MG; BID; SL, 10 MG; TID; SL
     Route: 060
     Dates: start: 20120214, end: 20120217

REACTIONS (5)
  - SYNCOPE [None]
  - BLOOD PRESSURE INCREASED [None]
  - OVERDOSE [None]
  - CARDIO-RESPIRATORY ARREST [None]
  - CEREBRAL ATROPHY [None]
